FAERS Safety Report 13063348 (Version 3)
Quarter: 2019Q4

REPORT INFORMATION
  Report Type: Spontaneous
  Country: US (occurrence: US)
  Receive Date: 20161227
  Receipt Date: 20191019
  Transmission Date: 20200122
  Serious: Yes (Other)
  Sender: FDA-Public Use
  Company Number: US-TEVA-724189ACC

PATIENT
  Age: 27 Year
  Sex: Female
  Weight: 72.64 kg

DRUGS (1)
  1. PLAN B ONE-STEP [Suspect]
     Active Substance: LEVONORGESTREL
     Indication: POST COITAL CONTRACEPTION
     Dates: start: 20161113, end: 20161113

REACTIONS (5)
  - Pregnancy after post coital contraception [Unknown]
  - Vaginal discharge [Recovered/Resolved]
  - Vaginal haemorrhage [Recovered/Resolved]
  - Dysmenorrhoea [Not Recovered/Not Resolved]
  - Maternal exposure during pregnancy [Unknown]

NARRATIVE: CASE EVENT DATE: 20161117
